FAERS Safety Report 7109636-0 (Version None)
Quarter: 2010Q4

REPORT INFORMATION
  Report Type: 
  Country: None (occurrence: None)
  Receive Date: 20101115
  Receipt Date: 20101115
  Transmission Date: 20110411
  Serious: No
  Sender: FDA-Public Use
  Company Number: None

PATIENT
  Sex: Female

DRUGS (1)
  1. BETASERON [Suspect]
     Indication: MULTIPLE SCLEROSIS
     Dosage: 0.3MG QOD SQ
     Route: 058
     Dates: start: 20101022, end: 20101108

REACTIONS (1)
  - INFLUENZA LIKE ILLNESS [None]
